FAERS Safety Report 8603327-2 (Version None)
Quarter: 2012Q3

REPORT INFORMATION
  Report Type: 
  Country: None (occurrence: None)
  Receive Date: 20120817
  Receipt Date: 20120813
  Transmission Date: 20120928
  Serious: Yes (Other)
  Sender: FDA-Public Use
  Company Number: US-UCBSA-063663

PATIENT
  Age: 32 Year
  Sex: Male

DRUGS (1)
  1. CIMZIA [Suspect]
     Indication: CROHN'S DISEASE
     Dosage: 400 MG AT WEEKS 0,2,4 THEN 400 MG EVERY 4 WEEKS
     Route: 058
     Dates: start: 20120314, end: 20120621

REACTIONS (2)
  - DRUG INEFFECTIVE [None]
  - ABDOMINAL OPERATION [None]
